FAERS Safety Report 5288211-7 (Version None)
Quarter: 2007Q1

REPORT INFORMATION
  Report Type: 
  Country: None (occurrence: None)
  Receive Date: 20070118
  Receipt Date: 20060928
  Transmission Date: 20070707
  Serious: Yes (Other)
  Sender: FDA-Public Use
  Company Number: HQWYE406729SEP06

PATIENT
  Age: 57 Year
  Sex: Female
  Weight: 59.02 kg

DRUGS (7)
  1. ADVIL PM [Suspect]
     Indication: INSOMNIA
     Dosage: 2 CAPLETS DAILY; ORAL
     Route: 048
     Dates: start: 20060801
  2. ADVIL PM [Suspect]
     Indication: PAIN
     Dosage: 2 CAPLETS DAILY; ORAL
     Route: 048
     Dates: start: 20060801
  3. GLUCOPHAGE [Concomitant]
  4. AVANDIA [Concomitant]
  5. ASPIRIN [Concomitant]
  6. LIPITOR [Concomitant]
  7. PRINIVIL [Concomitant]

REACTIONS (1)
  - DRUG EFFECT DECREASED [None]
